FAERS Safety Report 25092695 (Version 1)
Quarter: 2025Q1

REPORT INFORMATION
  Report Type: Report from Study
  Country: KR (occurrence: KR)
  Receive Date: 20250319
  Receipt Date: 20250319
  Transmission Date: 20250409
  Serious: Yes (Hospitalization)
  Sender: GENMAB
  Company Number: KR-ABBVIE-6175424

PATIENT
  Sex: Female

DRUGS (1)
  1. EPKINLY [Suspect]
     Active Substance: EPCORITAMAB-BYSP
     Indication: Diffuse large B-cell lymphoma
     Dosage: 48 MILLIGRAM,WEEKLY
     Route: 058
     Dates: start: 20250203

REACTIONS (1)
  - Viral infection [Recovering/Resolving]

NARRATIVE: CASE EVENT DATE: 20250217
